FAERS Safety Report 8027457-1 (Version None)
Quarter: 2012Q1

REPORT INFORMATION
  Report Type: 
  Country: None (occurrence: None)
  Receive Date: 20120105
  Receipt Date: 20120105
  Transmission Date: 20120608
  Serious: No
  Sender: FDA-Public Use
  Company Number: None

PATIENT
  Age: 72 Year
  Sex: Male
  Weight: 85.9 kg

DRUGS (2)
  1. LENALIDOMIDE [Suspect]
     Indication: RASH
     Dosage: 5 MG EVERY DAY PO
     Route: 048
     Dates: start: 20111017, end: 20111103
  2. DALTEPARIN SODIUM [Suspect]
     Indication: RASH
     Dosage: ML EVERY DAY SQ
     Route: 058
     Dates: start: 20111017, end: 20111121

REACTIONS (4)
  - RASH PRURITIC [None]
  - GENERALISED ERYTHEMA [None]
  - RASH GENERALISED [None]
  - RASH MORBILLIFORM [None]
